FAERS Safety Report 7284471-1 (Version None)
Quarter: 2011Q1

REPORT INFORMATION
  Report Type: 
  Country: None (occurrence: None)
  Receive Date: 20110209
  Receipt Date: 20110202
  Transmission Date: 20110831
  Serious: Yes (Other)
  Sender: FDA-Public Use
  Company Number: US-US-EMD SERONO, INC.-7039775

PATIENT
  Sex: Male

DRUGS (4)
  1. ALTACE [Concomitant]
  2. UNSPECIFIED MEDICATIONS [Concomitant]
  3. REBIF [Suspect]
     Indication: MULTIPLE SCLEROSIS
     Route: 058
     Dates: start: 20021120
  4. AMANTADINE HCL [Concomitant]

REACTIONS (6)
  - HEADACHE [None]
  - FATIGUE [None]
  - MULTIPLE SCLEROSIS RELAPSE [None]
  - ROTATOR CUFF SYNDROME [None]
  - FEELING ABNORMAL [None]
  - SLUGGISHNESS [None]
